FAERS Safety Report 8474482-2 (Version None)
Quarter: 2012Q2

REPORT INFORMATION
  Report Type: 
  Country: None (occurrence: None)
  Receive Date: 20120628
  Receipt Date: 20120620
  Transmission Date: 20120825
  Serious: Yes (Hospitalization)
  Sender: FDA-Public Use
  Company Number: JP-BAYER-2012-062097

PATIENT
  Age: 69 Year
  Sex: Male
  Weight: 161 kg

DRUGS (5)
  1. URSO 250 [Concomitant]
     Dosage: DAILY DOSE 300 MG
     Route: 048
  2. NEXAVAR [Suspect]
     Indication: HEPATIC NEOPLASM MALIGNANT
     Dosage: DAILY DOSE 400 MG
     Route: 048
     Dates: start: 20110830, end: 20110902
  3. NOVORAPID [Concomitant]
     Dosage: DAILY DOSE 19 U
     Route: 058
  4. FAMOTIDINE [Concomitant]
     Dosage: DAILY DOSE 10 MG
     Route: 048
  5. BARACLUDE [Concomitant]
     Dosage: DAILY DOSE .5 MG
     Route: 048

REACTIONS (1)
  - LIVER DISORDER [None]
